FAERS Safety Report 9926059 (Version 4)
Quarter: 2014Q2

REPORT INFORMATION
  Report Type: Spontaneous
  Country: US (occurrence: US)
  Receive Date: 20140226
  Receipt Date: 20140409
  Transmission Date: 20141212
  Serious: Yes (Hospitalization, Disabling, Other)
  Sender: FDA-Public Use
  Company Number: US-009507513-1402USA010110

PATIENT
  Sex: Male
  Weight: 32.8 kg

DRUGS (9)
  1. MIRALAX [Suspect]
     Indication: CONSTIPATION
     Dosage: 17 DF, UNKNOWN
     Route: 048
     Dates: start: 20110211, end: 20110212
  2. MIRALAX [Suspect]
     Dosage: 17 G, QD
     Route: 048
  3. SENOKOT (SENNA) [Suspect]
     Indication: CONSTIPATION
     Dosage: 2 DF, QD
     Route: 048
  4. OLIVE OIL [Suspect]
     Indication: PRODUCT USED FOR UNKNOWN INDICATION
     Dosage: 2 DF, QD
     Route: 048
  5. METAGENICS ULTRAFLORA BALANCE [Suspect]
     Indication: PRODUCT USED FOR UNKNOWN INDICATION
  6. WHEAT GRASS [Suspect]
     Indication: PRODUCT USED FOR UNKNOWN INDICATION
  7. FIBER (UNSPECIFIED) [Suspect]
     Indication: PRODUCT USED FOR UNKNOWN INDICATION
  8. CALM [Suspect]
     Indication: PRODUCT USED FOR UNKNOWN INDICATION
  9. ALOE VERA [Suspect]
     Indication: PRODUCT USED FOR UNKNOWN INDICATION

REACTIONS (49)
  - Cardiac arrest [Recovered/Resolved]
  - Vomiting [Recovering/Resolving]
  - Sepsis [Recovered/Resolved]
  - Colostomy [Recovered/Resolved]
  - Renal failure [Recovered/Resolved]
  - Ileostomy [Recovered/Resolved]
  - Colectomy total [Recovered/Resolved]
  - Disseminated intravascular coagulation [Recovered/Resolved]
  - Disability [Not Recovered/Not Resolved]
  - Nervous system disorder [Not Recovered/Not Resolved]
  - Gastrointestinal necrosis [Unknown]
  - Intestinal ischaemia [Recovered/Resolved]
  - Intestinal resection [Recovered/Resolved]
  - Ischaemic enteritis [Recovered/Resolved]
  - Injury [Not Recovered/Not Resolved]
  - pH body fluid abnormal [Unknown]
  - Overdose [Unknown]
  - Off label use [Unknown]
  - Off label use [Unknown]
  - Encopresis [Unknown]
  - Constipation [Unknown]
  - Flatulence [Unknown]
  - Drug ineffective [Unknown]
  - Abdominal pain [Unknown]
  - Abdominal distension [Recovered/Resolved]
  - Lethargy [Unknown]
  - Bradycardia [Recovered/Resolved]
  - Cyanosis [Recovered/Resolved]
  - Dehydration [Recovered/Resolved]
  - Pyrexia [Recovered/Resolved]
  - Peripheral coldness [Recovered/Resolved]
  - Iron deficiency anaemia [Recovered/Resolved]
  - Pouchitis [Recovered/Resolved]
  - Megacolon [Recovered/Resolved]
  - Pleural effusion [Recovered/Resolved]
  - Skin discolouration [Unknown]
  - Lid sulcus deepened [Unknown]
  - Hypertension [Recovered/Resolved]
  - Muscular weakness [Recovering/Resolving]
  - Dysphonia [Recovering/Resolving]
  - Decubitus ulcer [Recovered/Resolved]
  - Colonic pseudo-obstruction [Recovered/Resolved]
  - Hypermagnesaemia [Recovered/Resolved]
  - Drug withdrawal maintenance therapy [Recovering/Resolving]
  - Generalised oedema [Recovered/Resolved]
  - Wound treatment [Recovered/Resolved]
  - Ileostomy closure [Recovered/Resolved]
  - Gastrointestinal tube insertion [Recovered/Resolved]
  - Parenteral nutrition [Recovered/Resolved]
